FAERS Safety Report 5040771-7 (Version None)
Quarter: 2006Q2

REPORT INFORMATION
  Report Type: 
  Country: None (occurrence: None)
  Receive Date: 20060601
  Receipt Date: 20060306
  Transmission Date: 20061013
  Serious: No
  Sender: FDA-Public Use
  Company Number: 2006PV009731

PATIENT
  Age: 68 Year
  Sex: Male
  Weight: 139.7079 kg

DRUGS (7)
  1. BYETTA [Suspect]
     Indication: DIABETES MELLITUS NON-INSULIN-DEPENDENT
     Dosage: 10 MCG; 5 MCG : BID; SC
     Route: 058
     Dates: start: 20051101, end: 20051201
  2. BYETTA [Suspect]
     Indication: WEIGHT DECREASED
     Dosage: 10 MCG; 5 MCG : BID; SC
     Route: 058
     Dates: start: 20051101, end: 20051201
  3. BYETTA [Suspect]
     Indication: DIABETES MELLITUS NON-INSULIN-DEPENDENT
     Dosage: 10 MCG; 5 MCG : BID; SC
     Route: 058
     Dates: start: 20051201
  4. BYETTA [Suspect]
     Indication: WEIGHT DECREASED
     Dosage: 10 MCG; 5 MCG : BID; SC
     Route: 058
     Dates: start: 20051201
  5. GLUCOPHAGE XR [Concomitant]
  6. AMARYL [Concomitant]
  7. ACTOS [Concomitant]

REACTIONS (1)
  - BLOOD GLUCOSE INCREASED [None]
